FAERS Safety Report 8926155 (Version 3)
Quarter: 2014Q1

REPORT INFORMATION
  Report Type: Spontaneous
  Country: US (occurrence: US)
  Receive Date: 20121126
  Receipt Date: 20140102
  Transmission Date: 20141002
  Serious: Yes (Other)
  Sender: FDA-Public Use
  Company Number: US-BAYER-2012-121764

PATIENT
  Age: 19 Year
  Sex: Female
  Weight: 56.24 kg

DRUGS (7)
  1. OCELLA [Suspect]
     Indication: CONTRACEPTION
     Dosage: UNK
     Dates: start: 200908, end: 201001
  2. OCELLA [Suspect]
     Indication: CONTRACEPTION
     Dosage: UNK
     Dates: start: 200905, end: 200910
  3. URSO [Concomitant]
  4. PRILOSEC [Concomitant]
  5. PANCREATIC ENZYMES [Concomitant]
  6. LAXATIVE [Concomitant]
  7. PERCOCET [Concomitant]

REACTIONS (7)
  - Gallbladder disorder [None]
  - Biliary dyskinesia [None]
  - Cholecystitis chronic [None]
  - Pain [None]
  - Injury [None]
  - Pain [None]
  - Abdominal pain [None]
